FAERS Safety Report 6792604-6 (Version None)
Quarter: 2010Q2

REPORT INFORMATION
  Report Type: 
  Country: None (occurrence: None)
  Receive Date: 20100624
  Receipt Date: 20080827
  Transmission Date: 20101027
  Serious: No
  Sender: FDA-Public Use
  Company Number: US-PFIZER INC-2008071932

PATIENT
  Sex: Female
  Weight: 56.818 kg

DRUGS (6)
  1. DEPO-PROVERA SUSPENSION/INJ [Suspect]
     Indication: CERVICAL DYSPLASIA
     Route: 030
     Dates: start: 20070101
  2. LAMICTAL [Concomitant]
     Indication: ANXIETY
  3. LAMICTAL [Concomitant]
     Indication: SLEEP DISORDER
  4. KLONOPIN [Concomitant]
     Indication: ANXIETY
  5. KLONOPIN [Concomitant]
     Indication: SLEEP DISORDER
  6. VIBRAMYCIN [Concomitant]

REACTIONS (10)
  - ABDOMINAL PAIN [None]
  - ABDOMINAL PAIN UPPER [None]
  - FEELING COLD [None]
  - FOOD CRAVING [None]
  - INCORRECT DOSE ADMINISTERED [None]
  - INCREASED TENDENCY TO BRUISE [None]
  - MENORRHAGIA [None]
  - THYROXINE DECREASED [None]
  - VAGINAL INFECTION [None]
  - WEIGHT INCREASED [None]
